FAERS Safety Report 8870767 (Version 1)
Quarter: 2012Q4

REPORT INFORMATION
  Report Type: 
  Country: US (occurrence: US)
  Receive Date: 20121026
  Receipt Date: 20121026
  Transmission Date: 20130627
  Serious: No
  Sender: FDA-Public Use
  Company Number: US-AMGEN-USASP2012043046

PATIENT
  Age: 62 Year
  Sex: Female
  Weight: 133 kg

DRUGS (15)
  1. ENBREL [Suspect]
     Indication: PSORIATIC ARTHROPATHY
     Dosage: 50 mg, qwk
     Route: 058
  2. CENTRUM                            /00554501/ [Concomitant]
     Dosage: UNK
     Route: 048
  3. DYAZIDE [Concomitant]
     Dosage: 37.5/25, UNK
     Route: 048
  4. HYDROCHLOROTH [Concomitant]
     Dosage: 12.5 mg, UNK
     Route: 048
  5. VITAMIN E                          /00110501/ [Concomitant]
     Dosage: 400 unit, UNK
     Route: 048
  6. LEVOTHYROXIN [Concomitant]
     Dosage: 100 mug, UNK
     Route: 048
  7. ACIDOPHILUS [Concomitant]
     Dosage: UNK
     Route: 048
  8. OSCAL D [Concomitant]
     Dosage: 500/200, UNK
     Route: 048
  9. ACTOS [Concomitant]
     Dosage: 15 mg, UNK
     Route: 048
  10. VITAMIN C                          /00008001/ [Concomitant]
     Dosage: 500 mg, UNK
     Route: 048
  11. FOLIC ACID [Concomitant]
     Route: 048
  12. OMEGA 3                            /01334101/ [Concomitant]
     Dosage: 1000 mg, UNK
     Route: 048
  13. PROBIOTIC [Concomitant]
     Dosage: UNK
     Route: 048
  14. CRESTOR [Concomitant]
     Dosage: 10 mg, UNK
     Route: 048
  15. D-3 [Concomitant]
     Route: 048

REACTIONS (1)
  - Furuncle [Unknown]
